FAERS Safety Report 21446986 (Version 1)
Quarter: 2022Q4

REPORT INFORMATION
  Report Type: Other
  Country: XK (occurrence: None)
  Receive Date: 20221012
  Receipt Date: 20221012
  Transmission Date: 20230113
  Serious: Yes (Hospitalization)
  Sender: FDA-Public Use
  Company Number: XK-Nivagen-000021

PATIENT
  Age: 46 Year
  Sex: Female

DRUGS (2)
  1. TEMOZOLOMIDE [Suspect]
     Active Substance: TEMOZOLOMIDE
     Indication: Central nervous system lesion
  2. RITUXIMAB [Suspect]
     Active Substance: RITUXIMAB
     Indication: Central nervous system lesion

REACTIONS (2)
  - Central nervous system lesion [Not Recovered/Not Resolved]
  - Headache [Unknown]
